FAERS Safety Report 15202733 (Version 1)
Quarter: 2018Q3

REPORT INFORMATION
  Report Type: Spontaneous
  Country: None (occurrence: FR)
  Receive Date: 20180726
  Receipt Date: 20180726
  Transmission Date: 20181010
  Serious: No
  Sender: FDA-Public Use
  Company Number: FR-MEDAC PHARMA, INC.-2052771

PATIENT
  Age: 53 Year
  Sex: Male

DRUGS (2)
  1. METOJECT [Suspect]
     Active Substance: METHOTREXATE SODIUM
     Indication: PSORIATIC ARTHROPATHY
     Route: 058
     Dates: start: 20171122
  2. ENBREL [Suspect]
     Active Substance: ETANERCEPT
     Route: 058
     Dates: start: 201512

REACTIONS (1)
  - Testicular seminoma (pure) [Recovered/Resolved with Sequelae]

NARRATIVE: CASE EVENT DATE: 2017
